FAERS Safety Report 9342599 (Version 1)
Quarter: 2013Q2

REPORT INFORMATION
  Report Type: Spontaneous
  Country: FR (occurrence: FR)
  Receive Date: 20130611
  Receipt Date: 20130611
  Transmission Date: 20140414
  Serious: Yes (Death, Hospitalization)
  Sender: FDA-Public Use
  Company Number: FR-TEVA-411389ISR

PATIENT
  Age: 68 Year
  Sex: Male
  Weight: 110 kg

DRUGS (3)
  1. FUROSEMIDE TEVA 40 MG [Suspect]
     Indication: OEDEMA
     Dates: start: 2013
  2. KARDEGIC [Concomitant]
  3. ALDALIX [Concomitant]

REACTIONS (4)
  - Somnolence [Unknown]
  - Oedema [Unknown]
  - Death [Fatal]
  - Weight decreased [Unknown]
